FAERS Safety Report 9321119 (Version 2)
Quarter: 2013Q3

REPORT INFORMATION
  Report Type: Spontaneous
  Country: FR (occurrence: None)
  Receive Date: 20130528
  Receipt Date: 20130715
  Transmission Date: 20140515
  Serious: Yes (Hospitalization)
  Sender: FDA-Public Use
  Company Number: 7211319

PATIENT
  Age: 78 Year
  Sex: Female

DRUGS (6)
  1. LEVOTHYROX [Suspect]
     Indication: HYPOTHYROIDISM
     Dosage: 1 DF ORAL
     Route: 048
     Dates: start: 2010
  2. CORDARDONE /00133102/ (AMIODARONE HYDROCHLORIDE) (AMIODARONE HYDROCHLORIDE) [Concomitant]
  3. IKOREL (NICORANDIL) (NICORANDIL) [Concomitant]
  4. PREVISCAN (FLUINDIONE) (FLUINDIONE) [Concomitant]
  5. NOVONORM (REPAGLINIDE) (REPAGLINIDE) [Concomitant]
  6. CRESTOR /01588601/ (ROSUVASTATIN) (ROSUVASTATIN) [Concomitant]

REACTIONS (1)
  - Coronary artery disease [None]
